FAERS Safety Report 9197709 (Version 2)
Quarter: 2013Q2

REPORT INFORMATION
  Report Type: Spontaneous
  Country: JP (occurrence: JP)
  Receive Date: 20130328
  Receipt Date: 20130405
  Transmission Date: 20140414
  Serious: Yes (Other)
  Sender: FDA-Public Use
  Company Number: JP-ROCHE-1206838

PATIENT
  Age: 7 Decade
  Sex: Female

DRUGS (2)
  1. PEGASYS [Suspect]
     Indication: HEPATITIS C
     Dosage: DOSAGE UNCERTAIN
     Route: 058
  2. COPEGUS [Suspect]
     Indication: HEPATITIS C
     Dosage: DOSAGE UNCERTAIN
     Route: 048

REACTIONS (1)
  - Chronic inflammatory demyelinating polyradiculoneuropathy [Unknown]
